FAERS Safety Report 5925895-1 (Version None)
Quarter: 2008Q4

REPORT INFORMATION
  Report Type: 
  Country: None (occurrence: None)
  Receive Date: 20081021
  Receipt Date: 20081009
  Transmission Date: 20090506
  Serious: Yes (Hospitalization, Other)
  Sender: FDA-Public Use
  Company Number: US-PFIZER INC-2008085505

PATIENT
  Age: 67 Year
  Sex: Female

DRUGS (13)
  1. LYRICA [Suspect]
     Indication: DIABETIC NEUROPATHY
     Dates: start: 20080513
  2. TOPROL-XL [Concomitant]
  3. TIAZAC [Concomitant]
  4. NITROSTAT [Concomitant]
     Route: 060
  5. PLAVIX [Concomitant]
  6. OXYCONTIN [Concomitant]
  7. OXYCODONE HCL [Concomitant]
  8. CALCIUM [Concomitant]
  9. ASCORBIC ACID [Concomitant]
  10. VITAMIN E [Concomitant]
  11. LISINOPRIL [Concomitant]
  12. FUROSEMIDE [Concomitant]
  13. GLYBURIDE [Concomitant]

REACTIONS (3)
  - ANGINA PECTORIS [None]
  - MALAISE [None]
  - TREMOR [None]
